FAERS Safety Report 8437437-X (Version None)
Quarter: 2012Q2

REPORT INFORMATION
  Report Type: 
  Country: None (occurrence: None)
  Receive Date: 20120614
  Receipt Date: 20120327
  Transmission Date: 20120825
  Serious: No
  Sender: FDA-Public Use
  Company Number: US-AMGEN-USASP2012014367

PATIENT
  Age: 75 Year
  Sex: Female
  Weight: 39.002 kg

DRUGS (5)
  1. PROLIA [Suspect]
     Indication: OSTEOPOROSIS POSTMENOPAUSAL
     Dosage: 60 MG, Q6MO
     Route: 058
     Dates: start: 20120203, end: 20120203
  2. ATIVAN [Concomitant]
     Indication: ANXIETY
     Dosage: 1 MG, UNK
     Route: 048
  3. LIPITOR [Concomitant]
     Indication: DYSLIPIDAEMIA
     Dosage: 20 MG, QD
     Route: 048
  4. LOPRESSOR [Concomitant]
     Indication: HYPERTENSION
     Route: 048
  5. FIORICET [Concomitant]
     Indication: HEADACHE
     Route: 048

REACTIONS (5)
  - DECREASED APPETITE [None]
  - ASTHENIA [None]
  - DIVERTICULITIS [None]
  - WEIGHT DECREASED [None]
  - URINARY TRACT INFECTION [None]
